FAERS Safety Report 9048159 (Version 3)
Quarter: 2013Q2

REPORT INFORMATION
  Report Type: Spontaneous
  Country: US (occurrence: US)
  Receive Date: 20130201
  Receipt Date: 20130404
  Transmission Date: 20140414
  Serious: No
  Sender: FDA-Public Use
  Company Number: US-009507513-1211USA000417

PATIENT
  Age: 66 Year
  Sex: Female
  Weight: 70.3 kg

DRUGS (11)
  1. LOTRIMIN AF LIQUID SPRAY [Suspect]
     Indication: PRURITUS
     Dosage: UNK, BID
     Route: 061
     Dates: start: 20120820, end: 20120912
  2. LOTRIMIN AF LIQUID SPRAY [Suspect]
     Indication: TINEA PEDIS
  3. LOTRIMIN AF LIQUID SPRAY [Suspect]
     Indication: SKIN EXFOLIATION
  4. LOTRIMIN AF LIQUID SPRAY [Suspect]
     Indication: BURNING SENSATION
  5. HYDROCHLOROTHIAZIDE (+) LISINOPRIL [Concomitant]
     Indication: HYPERTENSION
     Dosage: UNK, UNKNOWN
  6. SIMVASTATIN [Concomitant]
     Indication: BLOOD CHOLESTEROL INCREASED
     Dosage: UNK, UNKNOWN
  7. VITAMINS (UNSPECIFIED) [Concomitant]
     Indication: PRODUCT USED FOR UNKNOWN INDICATION
     Dosage: UNK, UNKNOWN
  8. VITAMIN D (UNSPECIFIED) [Concomitant]
     Indication: PRODUCT USED FOR UNKNOWN INDICATION
     Dosage: UNK, UNKNOWN
  9. ASPIRIN [Concomitant]
     Indication: PRODUCT USED FOR UNKNOWN INDICATION
     Dosage: UNK, UNKNOWN
  10. OMEGA-3 MARINE TRIGLYCERIDES [Concomitant]
     Indication: PRODUCT USED FOR UNKNOWN INDICATION
     Dosage: UNK, UNKNOWN
  11. CALCIUM (UNSPECIFIED) [Concomitant]
     Indication: PRODUCT USED FOR UNKNOWN INDICATION
     Dosage: UNK, UNKNOWN

REACTIONS (2)
  - Drug ineffective [Unknown]
  - Drug effect decreased [Unknown]
